FAERS Safety Report 11073788 (Version 6)
Quarter: 2015Q4

REPORT INFORMATION
  Report Type: Report from Study
  Country: US (occurrence: US)
  Receive Date: 20150428
  Receipt Date: 20151102
  Transmission Date: 20160304
  Serious: Yes (Hospitalization, Other)
  Sender: FDA-Public Use
  Company Number: US-ACTELION-A-NJ2015-116869

PATIENT
  Age: 72 Year
  Sex: Female
  Weight: 118.82 kg

DRUGS (1)
  1. TRACLEER [Suspect]
     Active Substance: BOSENTAN
     Indication: PULMONARY ARTERIAL HYPERTENSION
     Dosage: UNK
     Route: 048
     Dates: start: 20110802

REACTIONS (11)
  - Faeces discoloured [Unknown]
  - Hepatic cirrhosis [Unknown]
  - Cardiac failure [Not Recovered/Not Resolved]
  - Asthenia [Unknown]
  - Hepatomegaly [Unknown]
  - Liver function test abnormal [Unknown]
  - Obesity [Unknown]
  - Splenomegaly [Unknown]
  - Aspartate aminotransferase increased [Unknown]
  - Anaemia [Unknown]
  - Alanine aminotransferase increased [Unknown]

NARRATIVE: CASE EVENT DATE: 201504
